FAERS Safety Report 24264831 (Version 1)
Quarter: 2024Q3

REPORT INFORMATION
  Report Type: Report from Study
  Country: US (occurrence: US)
  Receive Date: 20240829
  Receipt Date: 20240829
  Transmission Date: 20241017
  Serious: Yes (Other)
  Sender: ABBVIE
  Company Number: US-ABBVIE-5896890

PATIENT
  Sex: Female

DRUGS (1)
  1. HUMIRA [Suspect]
     Active Substance: ADALIMUMAB
     Indication: Product used for unknown indication
     Dosage: CITRATE FREE
     Route: 058
     Dates: start: 20240613

REACTIONS (7)
  - Biopsy salivary gland [Recovered/Resolved]
  - Osteopenia [Recovered/Resolved]
  - Nausea [Not Recovered/Not Resolved]
  - Sjogren^s syndrome [Recovering/Resolving]
  - Fatigue [Not Recovered/Not Resolved]
  - Osteoporosis [Recovered/Resolved]
  - Noninfective sialoadenitis [Recovered/Resolved]

NARRATIVE: CASE EVENT DATE: 20240101
